FAERS Safety Report 21714695 (Version 1)
Quarter: 2022Q4

REPORT INFORMATION
  Report Type: Spontaneous
  Country: US (occurrence: None)
  Receive Date: 20221209
  Receipt Date: 20221209
  Transmission Date: 20230112
  Serious: Yes (unspecified)
  Sender: FDA-Public Use
  Company Number: None

PATIENT
  Age: 76 Year
  Sex: Male
  Weight: 67 kg

DRUGS (1)
  1. MOLNUPIRAVIR [Suspect]
     Active Substance: MOLNUPIRAVIR
     Indication: COVID-19 treatment
     Dosage: FREQUENCY : TWICE A DAY;?
     Route: 048
     Dates: start: 20220902, end: 20220906

REACTIONS (2)
  - Seizure [None]
  - Symptom recurrence [None]

NARRATIVE: CASE EVENT DATE: 20220908
